FAERS Safety Report 6795733-6 (Version None)
Quarter: 2010Q2

REPORT INFORMATION
  Report Type: 
  Country: None (occurrence: None)
  Receive Date: 20100625
  Receipt Date: 20100617
  Transmission Date: 20101027
  Serious: Yes (Hospitalization, Other)
  Sender: FDA-Public Use
  Company Number: US-ABBOTT-10P-163-0652495-00

PATIENT
  Sex: Female

DRUGS (4)
  1. HUMIRA [Suspect]
     Indication: RHEUMATOID ARTHRITIS
     Dates: start: 20050101, end: 20090101
  2. HUMIRA [Suspect]
     Dates: start: 20100301
  3. REMICADE [Concomitant]
     Indication: RHEUMATOID ARTHRITIS
     Dates: start: 20090601, end: 20100201
  4. METHOTREXATE [Concomitant]
     Indication: RHEUMATOID ARTHRITIS
     Dates: start: 20090601, end: 20100201

REACTIONS (8)
  - DRUG INEFFECTIVE [None]
  - DYSPNOEA [None]
  - ILL-DEFINED DISORDER [None]
  - INAPPROPRIATE SCHEDULE OF DRUG ADMINISTRATION [None]
  - JOINT SWELLING [None]
  - LOSS OF EMPLOYMENT [None]
  - PAINFUL RESPIRATION [None]
  - PLEURISY [None]
